FAERS Safety Report 8300373-3 (Version None)
Quarter: 2012Q2

REPORT INFORMATION
  Report Type: 
  Country: None (occurrence: None)
  Receive Date: 20120420
  Receipt Date: 20120409
  Transmission Date: 20120825
  Serious: Yes (Hospitalization)
  Sender: FDA-Public Use
  Company Number: US-BAYER-201029272NA

PATIENT
  Age: 39 Year
  Sex: Female
  Weight: 63.039 kg

DRUGS (9)
  1. ADIPEX [Concomitant]
     Indication: WEIGHT DECREASED
     Dosage: UNK
     Dates: start: 20070101
  2. PREDNISONE TAB [Concomitant]
     Indication: INFLAMMATION
     Dosage: UNK
     Route: 048
     Dates: start: 20090620, end: 20090625
  3. KETOROLAC TROMETHAMINE [Concomitant]
     Indication: COSTOCHONDRITIS
     Dosage: UNK
     Dates: start: 20090629
  4. LEXAPRO [Concomitant]
     Indication: DEPRESSION
     Dosage: 10 MG, DAILY
     Route: 048
     Dates: start: 20000101, end: 20090601
  5. PRISTIQ [Concomitant]
     Indication: DEPRESSION
     Dosage: 50 MG, QD
  6. LACTULOSE [Concomitant]
     Indication: CONSTIPATION
     Dosage: UNK
     Dates: start: 20090629
  7. YAZ [Suspect]
     Indication: DYSFUNCTIONAL UTERINE BLEEDING
     Dosage: UNK
     Route: 048
     Dates: start: 20090420, end: 20090628
  8. ZITHROMAX [Concomitant]
     Indication: LUNG INFECTION
     Dosage: UNK
     Route: 048
     Dates: start: 20090620, end: 20090625
  9. ATIVAN [Concomitant]
     Indication: ANXIETY
     Dosage: UNK UNK, QID

REACTIONS (3)
  - DYSPNOEA [None]
  - PULMONARY EMBOLISM [None]
  - CHEST PAIN [None]
